FAERS Safety Report 23976115 (Version 1)
Quarter: 2024Q2

REPORT INFORMATION
  Report Type: Spontaneous
  Country: CN (occurrence: CN)
  Receive Date: 20240614
  Receipt Date: 20240614
  Transmission Date: 20240715
  Serious: Yes (Other)
  Sender: FDA-Public Use
  Company Number: CN-PFIZER INC-PV202400076659

PATIENT
  Age: 21 Month
  Sex: Female
  Weight: 10 kg

DRUGS (2)
  1. AZITHROMYCIN [Suspect]
     Active Substance: AZITHROMYCIN
     Indication: Bronchitis
     Dosage: 1 DF, 1X/DAY
     Route: 048
     Dates: start: 20240605, end: 20240607
  2. CEFACLOR [Concomitant]
     Active Substance: CEFACLOR
     Indication: Bronchitis
     Dosage: 0.66 DF, 3X/DAY
     Route: 048
     Dates: start: 20240604, end: 20240606

REACTIONS (2)
  - Rash [Recovered/Resolved]
  - Rash maculo-papular [Recovered/Resolved]

NARRATIVE: CASE EVENT DATE: 20240607
